FAERS Safety Report 22192748 (Version 1)
Quarter: 2023Q2

REPORT INFORMATION
  Report Type: Spontaneous
  Country: US (occurrence: None)
  Receive Date: 20230410
  Receipt Date: 20230410
  Transmission Date: 20230721
  Serious: Yes (Other)
  Sender: FDA-Public Use
  Company Number: None

PATIENT
  Age: 45 Year
  Sex: Female

DRUGS (10)
  1. TERBINAFINE [Suspect]
     Active Substance: TERBINAFINE
     Indication: Fungal infection
     Dosage: FREQUENCY : TWICE A DAY;?
     Route: 048
     Dates: start: 20230224, end: 20230321
  2. VITAMIN D [Concomitant]
     Active Substance: VITAMIN D NOS
  3. CALCIUM [Concomitant]
     Active Substance: CALCIUM
  4. VITAMIN B12 [Concomitant]
     Active Substance: CYANOCOBALAMIN
  5. VITAMIN C [Concomitant]
     Active Substance: ASCORBIC ACID
  6. Collagen/biotin [Concomitant]
  7. OMEGA-3 ACIDS [Concomitant]
     Active Substance: OMEGA-3 FATTY ACIDS
  8. Multi-strain probiotics [Concomitant]
  9. CRANBERRY [Concomitant]
     Active Substance: CRANBERRY
  10. MAGNESIUM OXIDE [Concomitant]
     Active Substance: MAGNESIUM OXIDE

REACTIONS (5)
  - Ageusia [None]
  - Decreased appetite [None]
  - Anosmia [None]
  - Weight decreased [None]
  - Inappropriate schedule of product administration [None]

NARRATIVE: CASE EVENT DATE: 20230320
